FAERS Safety Report 7367832-1 (Version None)
Quarter: 2011Q1

REPORT INFORMATION
  Report Type: 
  Country: None (occurrence: None)
  Receive Date: 20110322
  Receipt Date: 20110317
  Transmission Date: 20110831
  Serious: Yes (Hospitalization, Other)
  Sender: FDA-Public Use
  Company Number: US-ABBOTT-11P-163-0712757-00

PATIENT
  Sex: Female
  Weight: 49.486 kg

DRUGS (12)
  1. HUMIRA [Suspect]
     Indication: CROHN'S DISEASE
     Route: 058
  2. HUMIRA [Suspect]
     Route: 058
     Dates: start: 20110101, end: 20110101
  3. MARIJUANA [Concomitant]
     Indication: NAUSEA
  4. BUTRANS [Concomitant]
     Indication: PAIN MANAGEMENT
     Dosage: PATCH
     Route: 062
     Dates: start: 20110101
  5. HUMIRA [Suspect]
     Route: 058
     Dates: start: 20100801
  6. CYMBALTA [Concomitant]
     Indication: PRODUCT USED FOR UNKNOWN INDICATION
     Route: 048
  7. HUMIRA [Suspect]
     Route: 058
     Dates: start: 20110101, end: 20110101
  8. HUMIRA [Suspect]
     Route: 058
     Dates: start: 20110201
  9. CHANTIX [Concomitant]
     Indication: SMOKING CESSATION THERAPY
  10. PREDNISONE [Concomitant]
     Indication: PRODUCT USED FOR UNKNOWN INDICATION
     Route: 048
  11. FLORASTOR [Concomitant]
     Indication: GASTRIC DISORDER
     Dates: start: 20110101
  12. FLAGYL [Concomitant]
     Indication: PRODUCT USED FOR UNKNOWN INDICATION

REACTIONS (7)
  - HYPOKALAEMIA [None]
  - SIGMOIDITIS [None]
  - PROCTITIS [None]
  - IRRITABILITY [None]
  - ILEUS [None]
  - ILEITIS [None]
  - CROHN'S DISEASE [None]
